FAERS Safety Report 10265413 (Version 2)
Quarter: 2014Q2

REPORT INFORMATION
  Report Type: Spontaneous
  Country: JP (occurrence: JP)
  Receive Date: 20140627
  Receipt Date: 20140627
  Transmission Date: 20141212
  Serious: Yes (Life-Threatening, Hospitalization, Other)
  Sender: FDA-Public Use
  Company Number: JP-009507513-1406JPN000459

PATIENT
  Age: 52 Year
  Sex: Male
  Weight: 63 kg

DRUGS (6)
  1. PEGINTRON [Suspect]
     Indication: CHRONIC HEPATITIS C
     Dosage: 60 MICROGRAM, QW
     Route: 058
     Dates: start: 20140402, end: 20140521
  2. REBETOL [Suspect]
     Indication: CHRONIC HEPATITIS C
     Dosage: 600 MG, QD. DIVIDED DOSE FREQUENCY UNKNOWN
     Route: 048
     Dates: start: 20140402, end: 20140527
  3. ECARD HD [Suspect]
     Indication: HYPERTENSION
     Dosage: 1 DF, QD
     Route: 048
     Dates: start: 20130517, end: 20140527
  4. SIMEPREVIR [Suspect]
     Indication: CHRONIC HEPATITIS C
     Dosage: 100 MG, QD
     Dates: start: 20140402, end: 20140527
  5. LOXONIN [Concomitant]
     Indication: PROPHYLAXIS
     Dosage: DAILY DOSAGE UNKNOWN, POR FORMULATION
     Route: 048
     Dates: start: 20140402, end: 20140527
  6. GASTER D [Concomitant]
     Indication: GASTRITIS
     Dosage: DAILY DOSAGE UNKNOWN
     Route: 048
     Dates: start: 20101004, end: 20140527

REACTIONS (5)
  - Hyponatraemia [Recovered/Resolved]
  - Haemolytic anaemia [Recovering/Resolving]
  - Packed red blood cell transfusion [Recovering/Resolving]
  - Jaundice [Unknown]
  - Inappropriate schedule of drug administration [Unknown]
